FAERS Safety Report 14508895 (Version 2)
Quarter: 2018Q1

REPORT INFORMATION
  Report Type: Spontaneous
  Country: US (occurrence: US)
  Receive Date: 20180209
  Receipt Date: 20180306
  Transmission Date: 20180509
  Serious: No
  Sender: FDA-Public Use
  Company Number: US-ELI_LILLY_AND_COMPANY-US201801009253

PATIENT
  Age: 16 Year
  Sex: Male

DRUGS (3)
  1. HUMATROPE [Suspect]
     Active Substance: SOMATROPIN
     Dosage: 1 MG, UNKNOWN
     Route: 058
  2. HUMATROPE [Suspect]
     Active Substance: SOMATROPIN
     Dosage: 1.2 UNK, OTHER
     Route: 058
  3. HUMATROPE [Suspect]
     Active Substance: SOMATROPIN
     Indication: GROWTH HORMONE DEFICIENCY
     Dosage: 2 MG, UNKNOWN
     Route: 058
     Dates: start: 20180111

REACTIONS (1)
  - Headache [Recovered/Resolved]

NARRATIVE: CASE EVENT DATE: 20180111
